FAERS Safety Report 24045342 (Version 1)
Quarter: 2024Q3

REPORT INFORMATION
  Report Type: Spontaneous
  Country: US (occurrence: US)
  Receive Date: 20240703
  Receipt Date: 20240703
  Transmission Date: 20241016
  Serious: Yes (Hospitalization)
  Sender: MYLAN
  Company Number: US-MYLANLABS-2024M1060848

PATIENT
  Age: 4 Year
  Sex: Female

DRUGS (7)
  1. ERYTHROMYCIN [Suspect]
     Active Substance: ERYTHROMYCIN
     Indication: Chalazion
     Dosage: UNK
     Route: 061
  2. CLINDAMYCIN [Suspect]
     Active Substance: CLINDAMYCIN
     Indication: Chalazion
     Dosage: UNK
     Route: 048
  3. AZITHROMYCIN [Suspect]
     Active Substance: AZITHROMYCIN
     Indication: Chalazion
     Dosage: UNK
     Route: 048
  4. PREDNISONE [Suspect]
     Active Substance: PREDNISONE
     Indication: Chalazion
     Dosage: 1 MILLIGRAM/KILOGRAM, QD
     Route: 048
  5. NEOMYCIN SULFATE\POLYMYXIN B SULFATE\PREDNISOLONE ACETATE [Suspect]
     Active Substance: NEOMYCIN SULFATE\POLYMYXIN B SULFATE\PREDNISOLONE ACETATE
     Indication: Chalazion
     Dosage: UNK
     Route: 061
  6. AMOXICILLIN [Suspect]
     Active Substance: AMOXICILLIN
     Indication: Chalazion
     Dosage: UNK
     Route: 048
  7. CLAVULANATE POTASSIUM [Suspect]
     Active Substance: CLAVULANATE POTASSIUM
     Indication: Chalazion
     Dosage: UNK
     Route: 048

REACTIONS (2)
  - Drug ineffective [Unknown]
  - Off label use [Unknown]
